FAERS Safety Report 7685344-2 (Version None)
Quarter: 2011Q3

REPORT INFORMATION
  Report Type: 
  Country: None (occurrence: None)
  Receive Date: 20110816
  Receipt Date: 20110808
  Transmission Date: 20111222
  Serious: Yes (Hospitalization)
  Sender: FDA-Public Use
  Company Number: US-JNJFOC-20110804399

PATIENT
  Age: 49 Year
  Sex: Male
  Weight: 83.4 kg

DRUGS (1)
  1. TYLENOL PM [Suspect]
     Indication: PRODUCT USED FOR UNKNOWN INDICATION

REACTIONS (4)
  - SOMNOLENCE [None]
  - INTENTIONAL OVERDOSE [None]
  - DISORIENTATION [None]
  - SPEECH DISORDER [None]
